FAERS Safety Report 4926007-3 (Version None)
Quarter: 2006Q1

REPORT INFORMATION
  Report Type: 
  Country: None (occurrence: None)
  Receive Date: 20060228
  Receipt Date: 20050722
  Transmission Date: 20060701
  Serious: No
  Sender: FDA-Public Use
  Company Number: US-GLAXOSMITHKLINE-A0567585A

PATIENT
  Age: 60 Year
  Sex: Female
  Weight: 101.4 kg

DRUGS (4)
  1. LAMICTAL [Suspect]
     Indication: BIPOLAR I DISORDER
     Dosage: 25MG PER DAY
     Route: 048
     Dates: start: 20050629, end: 20050708
  2. GEODON [Concomitant]
     Dosage: 60MG TWICE PER DAY
  3. TYLENOL W/ CODEINE NO. 3 [Concomitant]
  4. LITHIUM [Concomitant]
     Dosage: 300MG TWICE PER DAY

REACTIONS (1)
  - RASH [None]
